FAERS Safety Report 7757256-7 (Version None)
Quarter: 2011Q3

REPORT INFORMATION
  Report Type: 
  Country: None (occurrence: None)
  Receive Date: 20110916
  Receipt Date: 20110913
  Transmission Date: 20111222
  Serious: Yes (Other)
  Sender: FDA-Public Use
  Company Number: FR-PFIZER INC-2011215172

PATIENT
  Age: 66 Year
  Sex: Female

DRUGS (2)
  1. ALPRAZOLAM [Suspect]
     Indication: ANXIETY
     Dosage: 0.25MG AND 0.5MG
  2. URBANYL [Concomitant]
     Dosage: 10 MG, UNK

REACTIONS (4)
  - MALAISE [None]
  - PLEURITIC PAIN [None]
  - HEART RATE INCREASED [None]
  - ABDOMINAL PAIN UPPER [None]
